FAERS Safety Report 4439065-X (Version None)
Quarter: 2004Q3

REPORT INFORMATION
  Report Type: 
  Country: None (occurrence: None)
  Receive Date: 20040901
  Receipt Date: 20040602
  Transmission Date: 20050211
  Serious: Yes (Other)
  Sender: FDA-Public Use
  Company Number: GB-GLAXOSMITHKLINE-B0334525A

PATIENT
  Age: 38 Year
  Sex: Female

DRUGS (2)
  1. LAMICTAL [Suspect]
     Dosage: 175MG UNKNOWN
     Route: 065
     Dates: start: 20001001
  2. NO CONCURRENT MEDICATION [Concomitant]

REACTIONS (5)
  - AUTOIMMUNE DISORDER [None]
  - ILL-DEFINED DISORDER [None]
  - POLYARTHRITIS [None]
  - RASH [None]
  - SYSTEMIC LUPUS ERYTHEMATOSUS [None]
